FAERS Safety Report 8216594-4 (Version None)
Quarter: 2012Q1

REPORT INFORMATION
  Report Type: 
  Country: None (occurrence: None)
  Receive Date: 20120316
  Receipt Date: 20120312
  Transmission Date: 20120608
  Serious: Yes (Death, Hospitalization, Other)
  Sender: FDA-Public Use
  Company Number: GB-ABBOTT-11P-167-0866815-00

PATIENT
  Sex: Male

DRUGS (2)
  1. AZATHIOPRINE [Concomitant]
     Indication: PRODUCT USED FOR UNKNOWN INDICATION
  2. HUMIRA [Suspect]
     Indication: RHEUMATOID ARTHRITIS
     Route: 058
     Dates: start: 20030415, end: 20061230

REACTIONS (19)
  - COLITIS [None]
  - ESSENTIAL HYPERTENSION [None]
  - HYPERTENSION [None]
  - GASTROINTESTINAL NECROSIS [None]
  - MULTI-ORGAN FAILURE [None]
  - MYOCARDIAL ISCHAEMIA [None]
  - DIARRHOEA [None]
  - RENAL FAILURE ACUTE [None]
  - PERIPHERAL VASCULAR DISORDER [None]
  - DIABETES MELLITUS [None]
  - DIVERTICULUM [None]
  - SCAN WITH CONTRAST ABNORMAL [None]
  - CEREBROVASCULAR ACCIDENT [None]
  - DIVERTICULITIS [None]
  - MESENTERIC VASCULAR INSUFFICIENCY [None]
  - INTESTINAL ISCHAEMIA [None]
  - RHEUMATOID ARTHRITIS [None]
  - ABDOMINAL PAIN [None]
  - ABDOMINAL PAIN LOWER [None]
